FAERS Safety Report 8565051-4 (Version None)
Quarter: 2012Q3

REPORT INFORMATION
  Report Type: 
  Country: None (occurrence: None)
  Receive Date: 20120723
  Receipt Date: 20120717
  Transmission Date: 20120928
  Serious: Yes (Hospitalization)
  Sender: FDA-Public Use
  Company Number: DSA_58546_2012

PATIENT
  Sex: Female

DRUGS (1)
  1. XENAZINE [Suspect]
     Indication: DYSKINESIA
     Dosage: 12.5 MG (1 TABLET EACH MORNING AND 2 TABLETS EACH EVENING) ORALMG
     Route: 048
     Dates: start: 20101216, end: 20120501

REACTIONS (1)
  - HOSPITALISATION [None]
